FAERS Safety Report 21365039 (Version 1)
Quarter: 2022Q3

REPORT INFORMATION
  Report Type: Spontaneous
  Country: US (occurrence: None)
  Receive Date: 20220921
  Receipt Date: 20220921
  Transmission Date: 20221027
  Serious: Yes (Other)
  Sender: FDA-Public Use
  Company Number: None

PATIENT
  Age: 50 Year
  Sex: Female

DRUGS (6)
  1. XELJANZ XR [Suspect]
     Active Substance: TOFACITINIB CITRATE
     Indication: Rheumatoid arthritis
     Dosage: FREQUENCY : DAILY;?
     Route: 048
     Dates: start: 20190129
  2. ACETAMIN TAB [Concomitant]
  3. HYDROCO/APAP TAB [Concomitant]
  4. IBUPROFEN TAB [Concomitant]
  5. PANTOPRAZOLE TAB [Concomitant]
  6. PEPCID TAB [Concomitant]

REACTIONS (3)
  - Alopecia [None]
  - Pain [None]
  - Therapy interrupted [None]

NARRATIVE: CASE EVENT DATE: 20220920
